FAERS Safety Report 4509436-1 (Version None)
Quarter: 2004Q4

REPORT INFORMATION
  Report Type: 
  Country: None (occurrence: None)
  Receive Date: 20041025
  Receipt Date: 20040709
  Transmission Date: 20050328
  Serious: Yes (Hospitalization)
  Sender: FDA-Public Use
  Company Number: US-JNJFOC-20040702662

PATIENT
  Age: 62 Year
  Sex: Female
  Weight: 66.2252 kg

DRUGS (12)
  1. INFLIXIMAB (INFLIXIMAB, RECOMBINANT) LYOPHILIZED POWDER [Suspect]
     Indication: RHEUMATOID ARTHRITIS
     Dosage: INTRAVENOUS
     Route: 042
     Dates: start: 20010412
  2. METHOTREXATE [Concomitant]
  3. FOLIC ACID [Concomitant]
  4. PREDNISONE [Concomitant]
  5. PLAQUENIL [Concomitant]
  6. ATENOLOL [Concomitant]
  7. DURAGESIC [Concomitant]
  8. CATAPRES [Concomitant]
  9. EFFEXOR [Concomitant]
  10. PROPOXY-N (DEXTROPROPOXYPHENE NAPSILATE) TABLETS [Concomitant]
  11. NEURONTIN (ALENDRONATE SODIUM) [Concomitant]
  12. POTASSIUM ACETATE [Concomitant]

REACTIONS (1)
  - INFLUENZA [None]
